FAERS Safety Report 9830518 (Version 4)
Quarter: 2014Q1

REPORT INFORMATION
  Report Type: Report from Study
  Country: JP (occurrence: JP)
  Receive Date: 20140120
  Receipt Date: 20140307
  Transmission Date: 20141002
  Serious: Yes (Hospitalization)
  Sender: FDA-Public Use
  Company Number: JP-NOVOPROD-396541

PATIENT
  Age: 72 Year
  Sex: Female

DRUGS (3)
  1. NOVONORM [Suspect]
     Indication: TYPE 2 DIABETES MELLITUS
     Dosage: 1.5 MG, QD
     Route: 048
     Dates: start: 20130314, end: 20131029
  2. METGLUCO [Concomitant]
     Dosage: UNK
     Route: 048
  3. ZOSYN [Concomitant]
     Dosage: UNK
     Route: 065
     Dates: start: 20131013, end: 20131017

REACTIONS (1)
  - Cholangitis [Recovering/Resolving]
